FAERS Safety Report 9184498 (Version 1)
Quarter: 2012Q4

REPORT INFORMATION
  Report Type: 
  Country: GB (occurrence: GB)
  Receive Date: 20121101
  Receipt Date: 20121101
  Transmission Date: 20130627
  Serious: Yes (Hospitalization, Other)
  Sender: FDA-Public Use
  Company Number: GB-ABBOTT-12P-167-0999606-00

PATIENT
  Age: 41 Year
  Sex: Female
  Weight: 76 kg

DRUGS (1)
  1. LEVOBUPIVACAINE [Suspect]
     Indication: LOCAL ANAESTHESIA
     Dosage: Indication: interscalene and superficial cervical plexus block
     Dates: start: 20120913, end: 20120913

REACTIONS (2)
  - Delayed recovery from anaesthesia [Recovered/Resolved]
  - Toxicity to various agents [Recovered/Resolved]
